FAERS Safety Report 8824714 (Version 1)
Quarter: 2012Q4

REPORT INFORMATION
  Report Type: 
  Country: MX (occurrence: MX)
  Receive Date: 20121004
  Receipt Date: 20121004
  Transmission Date: 20130627
  Serious: Yes (Hospitalization)
  Sender: FDA-Public Use
  Company Number: PHHY2012MX085636

PATIENT
  Age: 65 Year
  Sex: Female

DRUGS (6)
  1. EXFORGE HCT [Suspect]
     Indication: HYPERTENSION
     Dosage: 1 DF (10/25/320 mg amlodipine/hydrochlorothiazide/valsartan), daily
     Dates: start: 20120926
  2. EXFORGE HCT [Suspect]
     Dosage: UNK (5/12.5/160 mg amlodipine/hydrochlorothiazide/valsartan), UNK
     Dates: start: 20120927
  3. ASPIRIN [Concomitant]
     Dosage: 1 UKN, daily
  4. TENORMIN [Concomitant]
     Dosage: 1 DF, UNK
     Dates: start: 2007
  5. PLAVIX [Concomitant]
     Dosage: 1 DF, daily
  6. CLEXANE [Concomitant]
     Indication: ANTICOAGULANT THERAPY
     Dates: start: 20120927

REACTIONS (3)
  - Coronary artery occlusion [Not Recovered/Not Resolved]
  - Arrhythmia [Not Recovered/Not Resolved]
  - Anxiety [Not Recovered/Not Resolved]
